FAERS Safety Report 5746137-6 (Version None)
Quarter: 2008Q2

REPORT INFORMATION
  Report Type: 
  Country: None (occurrence: None)
  Receive Date: 20080520
  Receipt Date: 20080509
  Transmission Date: 20081010
  Serious: Yes (Hospitalization)
  Sender: FDA-Public Use
  Company Number: OMPQ-NO-0805S-0324

PATIENT
  Age: 63 Year
  Sex: Female

DRUGS (2)
  1. OMNIPAQUE 140 [Suspect]
     Indication: ABDOMINAL NEOPLASM
     Dosage: 100 ML, SINGLE DOSE, I.V.
     Route: 042
     Dates: start: 20080509, end: 20080509
  2. OMNIPAQUE 140 [Suspect]

REACTIONS (7)
  - CEREBROVASCULAR ACCIDENT [None]
  - CHEST PAIN [None]
  - CONTRAST MEDIA REACTION [None]
  - HEMIPARESIS [None]
  - LACRIMATION INCREASED [None]
  - SNEEZING [None]
  - VASOSPASM [None]
